FAERS Safety Report 8309901-5 (Version None)
Quarter: 2012Q2

REPORT INFORMATION
  Report Type: 
  Country: None (occurrence: None)
  Receive Date: 20120425
  Receipt Date: 20120416
  Transmission Date: 20120825
  Serious: Yes (Other)
  Sender: FDA-Public Use
  Company Number: US-ASTRAZENECA-2011SE24896

PATIENT
  Age: 48 Year
  Sex: Male

DRUGS (7)
  1. SEROQUEL [Suspect]
     Indication: BIPOLAR I DISORDER
     Route: 048
  2. SEROQUEL [Suspect]
     Route: 048
  3. SEROQUEL [Suspect]
     Route: 048
  4. SEROQUEL [Suspect]
     Indication: ATTENTION DEFICIT/HYPERACTIVITY DISORDER
     Route: 048
  5. NEXIUM [Suspect]
     Route: 048
  6. SEROQUEL [Suspect]
     Indication: BIPOLAR DISORDER
     Route: 048
  7. SEROQUEL [Suspect]
     Route: 048

REACTIONS (14)
  - STAPHYLOCOCCAL INFECTION [None]
  - ACTIVITIES OF DAILY LIVING IMPAIRED [None]
  - MALAISE [None]
  - OFF LABEL USE [None]
  - ULCER HAEMORRHAGE [None]
  - GASTRIC HAEMORRHAGE [None]
  - SINUS DISORDER [None]
  - STRESS [None]
  - DECREASED APPETITE [None]
  - DEPRESSED MOOD [None]
  - INTENTIONAL DRUG MISUSE [None]
  - CONSTIPATION [None]
  - INSOMNIA [None]
  - GASTRIC DISORDER [None]
